FAERS Safety Report 8005084-X (Version None)
Quarter: 2011Q4

REPORT INFORMATION
  Report Type: 
  Country: None (occurrence: None)
  Receive Date: 20111223
  Receipt Date: 20111031
  Transmission Date: 20120403
  Serious: Yes (Other)
  Sender: FDA-Public Use
  Company Number: US-PURDUE-USA-2011-0079880

PATIENT
  Sex: Female

DRUGS (1)
  1. OXYCONTIN [Suspect]
     Indication: PAIN
     Dosage: UNK
     Dates: start: 20070101, end: 20101028

REACTIONS (9)
  - DEPRESSION [None]
  - MITRAL VALVE INCOMPETENCE [None]
  - IRRITABLE BOWEL SYNDROME [None]
  - INSOMNIA [None]
  - PULMONARY VALVE INCOMPETENCE [None]
  - MOOD SWINGS [None]
  - PAIN [None]
  - DRUG DEPENDENCE [None]
  - ATRIAL HYPERTROPHY [None]
